FAERS Safety Report 13818536 (Version 2)
Quarter: 2021Q1

REPORT INFORMATION
  Report Type: Spontaneous
  Country: GB (occurrence: GB)
  Receive Date: 20170801
  Receipt Date: 20210208
  Transmission Date: 20210419
  Serious: Yes (Hospitalization, Other)
  Sender: FDA-Public Use
  Company Number: PHFR2017GB006064

PATIENT
  Age: 37 Year
  Sex: Female

DRUGS (12)
  1. MORPHINE [Concomitant]
     Active Substance: MORPHINE
     Indication: PRODUCT USED FOR UNKNOWN INDICATION
     Dosage: 15 MG, UNKNOWN DOSAGE FORM: UNSPECIFIED, POST OPERATIVELY)
     Route: 042
  2. REMIFENTANIL [Concomitant]
     Active Substance: REMIFENTANIL
     Indication: PRODUCT USED FOR UNKNOWN INDICATION
     Dosage: UNK
     Route: 065
  3. PARECOXIB [Concomitant]
     Active Substance: PARECOXIB
     Indication: PRODUCT USED FOR UNKNOWN INDICATION
     Dosage: 40 MG, UNKNOWN (DOSAGE FORM: UNSPECIFIED)
     Route: 042
  4. ONDANSETRON HYDROCHLORIDE. [Suspect]
     Active Substance: ONDANSETRON HYDROCHLORIDE
     Indication: PROPHYLAXIS OF NAUSEA AND VOMITING
     Dosage: 8 MG, QD (DOSAGE FORM UNSPECIFIED)
     Route: 042
     Dates: start: 20170530, end: 20170530
  5. ATRACURIUM [Concomitant]
     Active Substance: ATRACURIUM
     Indication: PRODUCT USED FOR UNKNOWN INDICATION
     Dosage: 30 MG, UNKNOWN ( (DOSAGE FORM: UNSPECIFIED);
     Route: 042
  6. DEXAMETHASONE. [Concomitant]
     Active Substance: DEXAMETHASONE
     Indication: PRODUCT USED FOR UNKNOWN INDICATION
     Dosage: 3.6 MG, UNKNOWN  (DOSAGE FORM: NSPECIFIED)
     Route: 042
  7. TRAMADOL HYDROCHLORIDE. [Interacting]
     Active Substance: TRAMADOL HYDROCHLORIDE
     Indication: PERIOPERATIVE ANALGESIA
     Dosage: 150 MG, QD DOSAGE FORM: UNSPECIFIED
     Route: 042
     Dates: start: 20170530, end: 20170530
  8. RESOLOR [Suspect]
     Active Substance: PRUCALOPRIDE SUCCINATE
     Indication: CONSTIPATION
     Dosage: 2 MG, QD DOSAGE FORM: UNSPECIFIED
     Route: 048
  9. GABAPENTIN. [Concomitant]
     Active Substance: GABAPENTIN
     Indication: PRODUCT USED FOR UNKNOWN INDICATION
     Dosage: 900 MG, TID IN 2017 (STOPPED 2 MONTHS AGO)
     Route: 065
     Dates: start: 2017
  10. PARACETAMOL [Concomitant]
     Active Substance: ACETAMINOPHEN
     Indication: PRODUCT USED FOR UNKNOWN INDICATION
     Dosage: 1 G, UNKNOWN (DOSAGE FORM: UNSPECIFIED)
     Route: 065
  11. PROPOFOL. [Concomitant]
     Active Substance: PROPOFOL
     Indication: PRODUCT USED FOR UNKNOWN INDICATION
     Dosage: UNK
     Route: 042
  12. TIBOLONE [Concomitant]
     Active Substance: TIBOLONE
     Indication: PRODUCT USED FOR UNKNOWN INDICATION
     Dosage: 2.5 MG, QD (DOSAGE FORM: UNSPECIFIED)
     Route: 065

REACTIONS (8)
  - Serotonin syndrome [Recovering/Resolving]
  - Renal impairment [Unknown]
  - Vomiting [Unknown]
  - Drug interaction [Unknown]
  - Nausea [Unknown]
  - Hyperreflexia [Unknown]
  - Myoclonus [Unknown]
  - Somnolence [Unknown]

NARRATIVE: CASE EVENT DATE: 20170530
